FAERS Safety Report 14916408 (Version 1)
Quarter: 2018Q2

REPORT INFORMATION
  Report Type: Spontaneous
  Country: CZ (occurrence: CZ)
  Receive Date: 20180519
  Receipt Date: 20180519
  Transmission Date: 20180711
  Serious: Yes (Other)
  Sender: FDA-Public Use
  Company Number: CZ-AUROBINDO-AUR-APL-2018-004582

PATIENT
  Age: 89 Year
  Sex: Female
  Weight: 44 kg

DRUGS (21)
  1. SPIRONOLACTONE. [Interacting]
     Active Substance: SPIRONOLACTONE
     Indication: PRODUCT USED FOR UNKNOWN INDICATION
     Route: 065
  2. VEROSPIRON [Interacting]
     Active Substance: SPIRONOLACTONE
     Route: 048
  3. PENTOMER [Suspect]
     Active Substance: PENTOXIFYLLINE
     Dosage: 1-1-1 (3)
     Route: 065
  4. DIGOXIN. [Interacting]
     Active Substance: DIGOXIN
     Indication: PRODUCT USED FOR UNKNOWN INDICATION
     Route: 065
  5. ALENDRONATE [Suspect]
     Active Substance: ALENDRONATE SODIUM
     Indication: OSTEOPOROSIS
     Route: 048
     Dates: start: 2006
  6. DIHYDROERGOTOXINE [Interacting]
     Active Substance: ERGOLOIDS
     Indication: PRODUCT USED FOR UNKNOWN INDICATION
     Route: 065
  7. DITHIADEN [Concomitant]
     Active Substance: BISULEPIN
     Route: 065
  8. MILURIT [Concomitant]
     Active Substance: ALLOPURINOL
     Indication: HYPERURICAEMIA
     Route: 048
  9. ALENDRONIC ACID [Suspect]
     Active Substance: ALENDRONIC ACID
     Indication: PRODUCT USED FOR UNKNOWN INDICATION
     Route: 065
  10. PENTOXIFYLLINE. [Concomitant]
     Active Substance: PENTOXIFYLLINE
     Route: 065
  11. ALENDRONIC ACID [Suspect]
     Active Substance: ALENDRONIC ACID
     Dosage: ()
     Route: 065
  12. AMIODARONE [Interacting]
     Active Substance: AMIODARONE
     Indication: PRODUCT USED FOR UNKNOWN INDICATION
     Route: 065
  13. CORDARONE [Interacting]
     Active Substance: AMIODARONE HYDROCHLORIDE
     Indication: CARDIAC FAILURE
     Dosage: 1-0-0
     Route: 048
  14. WARFARIN [Concomitant]
     Active Substance: WARFARIN
     Route: 065
  15. FURON                              /00032601/ [Suspect]
     Active Substance: FUROSEMIDE
     Dosage: AS NECESSARY
     Route: 048
  16. SECATOXIN [Suspect]
     Active Substance: ERGOLOID MESYLATES
     Dosage: GTT; 20-20-20 ()
     Route: 065
  17. DILATREND [Interacting]
     Active Substance: CARVEDILOL
     Dosage: 1-0-0
     Route: 048
  18. CARVEDILOL. [Suspect]
     Active Substance: CARVEDILOL
     Indication: PRODUCT USED FOR UNKNOWN INDICATION
     Route: 065
  19. DIGOXIN. [Interacting]
     Active Substance: DIGOXIN
     Indication: CARDIAC FAILURE
     Dosage: 1-0-0
     Route: 048
  20. FLUTICA /00972202/ [Concomitant]
     Active Substance: FLUTICASONE PROPIONATE
     Dosage: 50/250
     Route: 065
  21. HYDERGINE                          /00436902/ [Concomitant]
     Route: 048

REACTIONS (22)
  - Hyperkalaemia [Unknown]
  - Haemoglobin decreased [None]
  - Blood thyroid stimulating hormone increased [None]
  - Heart rate decreased [Unknown]
  - Nausea [Unknown]
  - Diarrhoea [Unknown]
  - Overdose [Unknown]
  - Dysphagia [None]
  - Ejection fraction decreased [None]
  - Blood uric acid increased [None]
  - Glomerular filtration rate decreased [None]
  - Fall [Unknown]
  - Bradycardia [Unknown]
  - Hypotension [Unknown]
  - Weight decreased [Unknown]
  - Labelled drug-drug interaction medication error [Unknown]
  - Vision blurred [Unknown]
  - Cardioactive drug level increased [Unknown]
  - Toxicity to various agents [Unknown]
  - Vomiting [Unknown]
  - Decreased appetite [Unknown]
  - Drug interaction [Unknown]
